FAERS Safety Report 9361583 (Version 1)
Quarter: 2013Q2

REPORT INFORMATION
  Report Type: Report from Study
  Country: US (occurrence: US)
  Receive Date: 20130621
  Receipt Date: 20130621
  Transmission Date: 20140414
  Serious: Yes (Hospitalization, Other)
  Sender: FDA-Public Use
  Company Number: PHEH2013US010852

PATIENT
  Sex: Female

DRUGS (4)
  1. TOBI [Suspect]
     Indication: CYSTIC FIBROSIS
     Dosage: 300 MG, BID
     Dates: start: 201208
  2. PULMOZYME [Concomitant]
     Dosage: UNK UKN, UNK
  3. NASONEX [Concomitant]
     Dosage: UNK UKN, UNK
  4. XOPENEX [Concomitant]
     Dosage: UNK UKN, UNK

REACTIONS (3)
  - Brain injury [Unknown]
  - Parosmia [Unknown]
  - Rhinorrhoea [Unknown]
